FAERS Safety Report 18595614 (Version 1)
Quarter: 2020Q4

REPORT INFORMATION
  Report Type: Spontaneous
  Country: US (occurrence: US)
  Receive Date: 20201209
  Receipt Date: 20201209
  Transmission Date: 20210114
  Serious: Yes (Other)
  Sender: FDA-Public Use
  Company Number: None

PATIENT
  Age: 79 Year
  Sex: Female
  Weight: 88 kg

DRUGS (18)
  1. RIVAROXABAN [Concomitant]
     Active Substance: RIVAROXABAN
  2. VENLAFAXINE XR [Concomitant]
     Active Substance: VENLAFAXINE HYDROCHLORIDE
  3. DEXAMETHASONE. [Concomitant]
     Active Substance: DEXAMETHASONE
  4. FAMOTIDINE. [Concomitant]
     Active Substance: FAMOTIDINE
  5. COMBIGEN 0.2% OPTHALMIC [Concomitant]
  6. FUROSEMIDE. [Concomitant]
     Active Substance: FUROSEMIDE
  7. LATANOPROST. [Concomitant]
     Active Substance: LATANOPROST
  8. METOPROLOL TARTRATE. [Concomitant]
     Active Substance: METOPROLOL TARTRATE
  9. MAGIC MOUTHWASH [Concomitant]
     Active Substance: DIPHENHYDRAMINE HYDROCHLORIDE\LIDOCAINE HYDROCHLORIDE\NYSTATIN
  10. OLOPATADINE OPTHALMIC [Concomitant]
  11. REMDESIVIR 100 MG POWDER FOR SOLUTION [Suspect]
     Active Substance: REMDESIVIR
     Indication: COVID-19
     Route: 042
     Dates: start: 20201205, end: 20201205
  12. MULTIVITAMIN [Concomitant]
     Active Substance: VITAMINS
  13. ASPIRIN. [Concomitant]
     Active Substance: ASPIRIN
  14. DILTIAZEM CD [Concomitant]
     Active Substance: DILTIAZEM
  15. ISOSORBIDE MONONITRATE. [Concomitant]
     Active Substance: ISOSORBIDE MONONITRATE
  16. GABAPENTIN. [Concomitant]
     Active Substance: GABAPENTIN
  17. ACETAMINOPHEN. [Concomitant]
     Active Substance: ACETAMINOPHEN
  18. CLOPIDOGREL [Concomitant]
     Active Substance: CLOPIDOGREL BISULFATE

REACTIONS (5)
  - Erythema [None]
  - Drug eruption [None]
  - Blister [None]
  - Rash [None]
  - Dermatitis bullous [None]

NARRATIVE: CASE EVENT DATE: 20201205
